FAERS Safety Report 5135037-0 (Version None)
Quarter: 2006Q4

REPORT INFORMATION
  Report Type: 
  Country: None (occurrence: None)
  Receive Date: 20060831
  Receipt Date: 20060728
  Transmission Date: 20070319
  Serious: No
  Sender: FDA-Public Use
  Company Number: 2006-BP-08689BP

PATIENT
  Sex: Female

DRUGS (3)
  1. SPIRIVA [Suspect]
     Indication: CHRONIC OBSTRUCTIVE PULMONARY DISEASE
     Dosage: 18 MCG (18 MCG,1 IN 1 D),IH
     Route: 055
     Dates: start: 20060101
  2. ADVAIR DISKUS 100/50 [Concomitant]
  3. ALBUTEROL [Concomitant]

REACTIONS (5)
  - BLOOD PRESSURE INCREASED [None]
  - DRY EYE [None]
  - EYE DISORDER [None]
  - EYE HAEMORRHAGE [None]
  - MIGRAINE [None]
